FAERS Safety Report 12113349 (Version 1)
Quarter: 2016Q1

REPORT INFORMATION
  Report Type: Report from Study
  Country: US (occurrence: US)
  Receive Date: 20160225
  Receipt Date: 20160225
  Transmission Date: 20160526
  Serious: Yes (Other)
  Sender: FDA-Public Use
  Company Number: US-ROCHE-1714946

PATIENT
  Age: 55 Year
  Sex: Female

DRUGS (2)
  1. RITUXAN [Suspect]
     Active Substance: RITUXIMAB
     Route: 042
     Dates: start: 20160107
  2. RITUXAN [Suspect]
     Active Substance: RITUXIMAB
     Indication: RHEUMATOID ARTHRITIS
     Route: 042
     Dates: start: 2012

REACTIONS (6)
  - Dizziness [Unknown]
  - Urine output decreased [Unknown]
  - Dyspnoea [Unknown]
  - Chest pain [Unknown]
  - Wheezing [Unknown]
  - Palpitations [Unknown]

NARRATIVE: CASE EVENT DATE: 20160107
